FAERS Safety Report 7860297-2 (Version None)
Quarter: 2011Q4

REPORT INFORMATION
  Report Type: 
  Country: None (occurrence: None)
  Receive Date: 20111026
  Receipt Date: 20111015
  Transmission Date: 20120403
  Serious: Yes (Hospitalization)
  Sender: FDA-Public Use
  Company Number: 2011AP002412

PATIENT
  Age: 51 Year
  Sex: Male

DRUGS (2)
  1. METFORMIN HCL [Suspect]
     Indication: DIABETES MELLITUS
     Dosage: Q6H
  2. OXYCODONE HCL AND ACETAMINOPHEN [Concomitant]

REACTIONS (8)
  - UNRESPONSIVE TO STIMULI [None]
  - BLOOD PRESSURE DECREASED [None]
  - BLOOD CREATININE INCREASED [None]
  - CHEYNE-STOKES RESPIRATION [None]
  - BLOOD GLUCOSE DECREASED [None]
  - LACTIC ACIDOSIS [None]
  - ACCIDENTAL OVERDOSE [None]
  - WRONG DRUG ADMINISTERED [None]
